FAERS Safety Report 14590049 (Version 1)
Quarter: 2020Q3

REPORT INFORMATION
  Report Type: Report from Study
  Country: JP (occurrence: JP)
  Receive Date: 20180302
  Receipt Date: 20180302
  Transmission Date: 20201105
  Serious: Yes (Hospitalization)
  Sender: FDA-Public Use
  Company Number: JP-ASTRAZENECA-2016SE36949

PATIENT
  Age: 24416 Day
  Sex: Male

DRUGS (21)
  1. TREMELIMUMAB. [Suspect]
     Active Substance: TREMELIMUMAB
     Indication: NON-SMALL CELL LUNG CANCER
     Dosage: 72.0MG ONCE/SINGLE ADMINISTRATION
     Route: 042
     Dates: start: 20160128, end: 20160128
  2. INDOMETACIN [Concomitant]
     Active Substance: INDOMETHACIN
     Indication: NEURALGIA
     Dosage: AS REQUIRED
     Route: 003
  3. MEDI4736 [Suspect]
     Active Substance: DURVALUMAB
     Indication: NON-SMALL CELL LUNG CANCER
     Dosage: 1440.0MG ONCE/SINGLE ADMINISTRATION
     Route: 042
     Dates: start: 20160225, end: 20160225
  4. TREMELIMUMAB. [Suspect]
     Active Substance: TREMELIMUMAB
     Indication: NON-SMALL CELL LUNG CANCER
     Dosage: 72.0MG ONCE/SINGLE ADMINISTRATION
     Route: 042
     Dates: start: 20160225, end: 20160225
  5. MEDI4736 [Suspect]
     Active Substance: DURVALUMAB
     Indication: NON-SMALL CELL LUNG CANCER
     Dosage: 1440.0MG ONCE/SINGLE ADMINISTRATION
     Route: 042
     Dates: start: 20151203, end: 20151203
  6. MEDI4736 [Suspect]
     Active Substance: DURVALUMAB
     Indication: NON-SMALL CELL LUNG CANCER
     Dosage: 1440.0MG ONCE/SINGLE ADMINISTRATION
     Route: 042
     Dates: start: 20160128, end: 20160128
  7. XALACOM [Concomitant]
     Active Substance: LATANOPROST\TIMOLOL MALEATE
     Indication: GLAUCOMA
     Dosage: DAILY
     Route: 047
     Dates: start: 20160114
  8. TREMELIMUMAB. [Suspect]
     Active Substance: TREMELIMUMAB
     Indication: NON-SMALL CELL LUNG CANCER
     Dosage: 72.0MG ONCE/SINGLE ADMINISTRATION
     Route: 042
     Dates: start: 20151203, end: 20151203
  9. TREMELIMUMAB. [Suspect]
     Active Substance: TREMELIMUMAB
     Indication: NON-SMALL CELL LUNG CANCER
     Dosage: 72.0MG ONCE/SINGLE ADMINISTRATION
     Route: 042
     Dates: start: 20151228, end: 20151228
  10. ZOLPIDEM TARTRATE. [Concomitant]
     Active Substance: ZOLPIDEM TARTRATE
     Indication: INSOMNIA
     Route: 048
  11. ESOMEPRAZOLE MAGNESIUM. [Concomitant]
     Active Substance: ESOMEPRAZOLE MAGNESIUM
     Indication: GASTRITIS PROPHYLAXIS
     Route: 048
  12. FUROSEMIDE. [Concomitant]
     Active Substance: FUROSEMIDE
     Indication: FACE OEDEMA
     Route: 048
  13. FUROSEMIDE. [Concomitant]
     Active Substance: FUROSEMIDE
     Indication: OEDEMA PERIPHERAL
     Route: 048
  14. MEDI4736 [Suspect]
     Active Substance: DURVALUMAB
     Indication: NON-SMALL CELL LUNG CANCER
     Dosage: 1440.0MG ONCE/SINGLE ADMINISTRATION
     Route: 042
     Dates: start: 20151228, end: 20151228
  15. PREGABALIN. [Concomitant]
     Active Substance: PREGABALIN
     Indication: PERIPHERAL SENSORY NEUROPATHY
     Route: 048
  16. OXYCODONE HYDROCHLORIDE. [Concomitant]
     Active Substance: OXYCODONE HYDROCHLORIDE
     Indication: NEURALGIA
     Route: 048
     Dates: start: 20150924
  17. FLUOROMETHOLONE. [Concomitant]
     Active Substance: FLUOROMETHOLONE
     Indication: PROPHYLAXIS
     Route: 047
  18. CELECOXIB. [Concomitant]
     Active Substance: CELECOXIB
     Indication: NEURALGIA
     Route: 048
  19. HEPARINOID [Concomitant]
     Active Substance: CHONDROITIN SULFATE (BOVINE)
     Indication: DRY SKIN
     Dosage: AS REQUIRED
     Route: 003
  20. PROCHLORPERAZINE MALEATE. [Concomitant]
     Active Substance: PROCHLORPERAZINE MALEATE
     Indication: PROPHYLAXIS OF NAUSEA AND VOMITING
     Route: 048
     Dates: start: 20150924
  21. XALACOM [Concomitant]
     Active Substance: LATANOPROST\TIMOLOL MALEATE
     Indication: OCULAR HYPERTENSION
     Dosage: DAILY
     Route: 047
     Dates: start: 20160114

REACTIONS (1)
  - Pancreatitis [Recovering/Resolving]

NARRATIVE: CASE EVENT DATE: 20160317
